FAERS Safety Report 5259066-1 (Version None)
Quarter: 2007Q1

REPORT INFORMATION
  Report Type: 
  Country: None (occurrence: None)
  Receive Date: 20070305
  Receipt Date: 20070222
  Transmission Date: 20070707
  Serious: Yes (Other)
  Sender: FDA-Public Use
  Company Number: GXKR2007GB01958

PATIENT
  Age: 64 Year
  Sex: Female

DRUGS (6)
  1. TRIMETHOPRIM [Suspect]
     Indication: RESPIRATORY TRACT INFECTION
     Dosage: 200 MG,  BID, ORAL
     Route: 048
     Dates: start: 20070201, end: 20070202
  2. CETIRIZINE (CETIRIZINE) [Concomitant]
  3. DOXAZOSIN (DOXAZOSIN) [Concomitant]
  4. LOSARTAN POTASSIUM [Concomitant]
  5. ACETAMINOPHEN [Concomitant]
  6. SIMVASTATIN [Concomitant]

REACTIONS (4)
  - HEADACHE [None]
  - NAUSEA [None]
  - PRURITUS [None]
  - SOMNOLENCE [None]
